FAERS Safety Report 6012235-5 (Version None)
Quarter: 2008Q4

REPORT INFORMATION
  Report Type: 
  Country: None (occurrence: None)
  Receive Date: 20081218
  Receipt Date: 20081208
  Transmission Date: 20090506
  Serious: Yes (Hospitalization)
  Sender: FDA-Public Use
  Company Number: FR-ELI_LILLY_AND_COMPANY-FR200809002408

PATIENT
  Age: 73 Year
  Sex: Female
  Weight: 72 kg

DRUGS (10)
  1. FORTEO [Suspect]
     Indication: OSTEOPOROSIS
     Dosage: 20 UG, DAILY (1/D)
     Route: 058
     Dates: start: 20080701
  2. DETENSIEL [Concomitant]
     Dosage: UNK, UNKNOWN
     Route: 065
  3. MODURETIC 5-50 [Concomitant]
     Dosage: UNK, UNKNOWN
     Route: 065
  4. SEROPLEX [Concomitant]
     Dosage: UNK, UNKNOWN
     Route: 065
  5. SPIRIVA [Concomitant]
     Dosage: UNK, UNKNOWN
     Route: 065
  6. KALEORID [Concomitant]
     Dosage: UNK, UNKNOWN
     Route: 065
  7. PRAVASTATIN [Concomitant]
     Dosage: UNK, UNKNOWN
     Route: 065
  8. RABEPRAZOLE SODIUM [Concomitant]
     Dosage: UNK, UNKNOWN
     Route: 065
  9. TOPALGIC [Concomitant]
     Dosage: UNK, UNKNOWN
     Route: 065
  10. OROCAL D(3) [Concomitant]
     Dosage: 2 D/F, DAILY (1/D)
     Route: 065

REACTIONS (9)
  - ANOREXIA [None]
  - FALL [None]
  - HYPERCALCAEMIA [None]
  - NUTRITIONAL CONDITION ABNORMAL [None]
  - OEDEMA PERIPHERAL [None]
  - ORTHOSTATIC HYPOTENSION [None]
  - VARICOSE ULCERATION [None]
  - VOMITING [None]
  - WEIGHT DECREASED [None]
